FAERS Safety Report 6551589-8 (Version None)
Quarter: 2010Q1

REPORT INFORMATION
  Report Type: 
  Country: None (occurrence: None)
  Receive Date: 20100126
  Receipt Date: 20100113
  Transmission Date: 20100710
  Serious: No
  Sender: FDA-Public Use
  Company Number: US-BAYER-201011955NA

PATIENT
  Age: 33 Year
  Sex: Male

DRUGS (1)
  1. MAGNEVIST [Suspect]
     Indication: SCAN BRAIN
     Route: 042
     Dates: start: 20100112, end: 20100112

REACTIONS (1)
  - NAUSEA [None]
